FAERS Safety Report 4982774-4 (Version None)
Quarter: 2006Q2

REPORT INFORMATION
  Report Type: 
  Country: None (occurrence: None)
  Receive Date: 20060425
  Receipt Date: 20050930
  Transmission Date: 20061013
  Serious: Yes (Hospitalization, Disabling, Other)
  Sender: FDA-Public Use
  Company Number: US-MERCK-0510USA02059

PATIENT
  Age: 56 Year
  Sex: Male
  Weight: 91 kg

DRUGS (7)
  1. VIOXX [Suspect]
     Indication: ARTHRITIS
     Route: 048
     Dates: start: 20000822, end: 20041001
  2. AVANDIA [Concomitant]
     Route: 065
  3. GLYBURIDE [Concomitant]
     Route: 065
  4. GLUCOVANCE [Concomitant]
     Route: 065
  5. GLUCOTROL XL [Concomitant]
     Route: 065
  6. LESCOL [Concomitant]
     Route: 065
  7. HYDROCODONE BITARTRATE [Concomitant]
     Route: 065

REACTIONS (18)
  - ABSCESS LIMB [None]
  - ANXIETY [None]
  - ASTHENIA [None]
  - BLOOD CHOLESTEROL INCREASED [None]
  - CEREBROVASCULAR ACCIDENT [None]
  - CHEST PAIN [None]
  - DEPRESSION [None]
  - DIPLOPIA [None]
  - DIZZINESS [None]
  - FALL [None]
  - HEADACHE [None]
  - HYPERTENSION [None]
  - JOINT CREPITATION [None]
  - MYOCARDIAL INFARCTION [None]
  - OPTIC NERVE DISORDER [None]
  - POLYTRAUMATISM [None]
  - PRURITUS [None]
  - SKIN LACERATION [None]
